FAERS Safety Report 15402123 (Version 1)
Quarter: 2018Q3

REPORT INFORMATION
  Report Type: Spontaneous
  Country: US (occurrence: US)
  Receive Date: 20180915
  Receipt Date: 20180915
  Transmission Date: 20181010
  Serious: Yes (Hospitalization)
  Sender: FDA-Public Use
  Company Number: None

PATIENT
  Age: 60 Year
  Sex: Female
  Weight: 80.55 kg

DRUGS (9)
  1. STOMACH MED [Concomitant]
  2. BLOOD CLOT MED [Concomitant]
  3. RA MED [Concomitant]
  4. FISH OIL [Concomitant]
     Active Substance: FISH OIL
  5. VITAMIN D3 [Concomitant]
     Active Substance: CHOLECALCIFEROL
  6. BP MED [Concomitant]
  7. HUMIRA [Suspect]
     Active Substance: ADALIMUMAB
     Indication: RHEUMATOID ARTHRITIS
     Dosage: ?          QUANTITY:2 INJECTION(S);OTHER FREQUENCY:1 EVERY 14 DAYS;?
     Route: 058
     Dates: start: 20180820, end: 20180906
  8. CALCIUM [Concomitant]
     Active Substance: CALCIUM
  9. MEDIPREDISONE [Concomitant]

REACTIONS (2)
  - Urinary tract infection [None]
  - Pulmonary embolism [None]

NARRATIVE: CASE EVENT DATE: 20180909
